FAERS Safety Report 14511560 (Version 13)
Quarter: 2019Q2

REPORT INFORMATION
  Report Type: Spontaneous
  Country: CA (occurrence: CA)
  Receive Date: 20180209
  Receipt Date: 20190516
  Transmission Date: 20190711
  Serious: Yes (Hospitalization, Other)
  Sender: FDA-Public Use
  Company Number: CA-CELLTRION INC.-2017CA011210

PATIENT

DRUGS (18)
  1. OVIMA 21 [Concomitant]
     Indication: CONTRACEPTION
     Dosage: UNK
  2. INFLECTRA [Suspect]
     Active Substance: INFLIXIMAB-DYYB
     Dosage: 800 MG (EVERY 8 WEEKS)
     Route: 042
     Dates: start: 20180920
  3. INFLECTRA [Suspect]
     Active Substance: INFLIXIMAB-DYYB
     Dosage: 800 MG (EVERY 8 WEEKS)
     Route: 042
     Dates: start: 20190502
  4. INFLECTRA [Suspect]
     Active Substance: INFLIXIMAB-DYYB
     Dosage: 800 MG (EVERY 8 WEEKS)
     Route: 042
     Dates: start: 20181107
  5. INFLECTRA [Suspect]
     Active Substance: INFLIXIMAB-DYYB
     Dosage: 800 MG (EVERY 8 WEEKS)
     Route: 042
     Dates: start: 20190110
  6. CORTIFOAM [Concomitant]
     Active Substance: HYDROCORTISONE ACETATE
     Dosage: UNK
     Route: 054
     Dates: start: 20170513
  7. VANCOMYCIN [Concomitant]
     Active Substance: VANCOMYCIN
     Indication: CLOSTRIDIUM DIFFICILE INFECTION
     Dosage: 125 MG, 4X/DAY
     Route: 048
     Dates: start: 20180122
  8. INFLECTRA [Suspect]
     Active Substance: INFLIXIMAB-DYYB
     Dosage: 400 MG (EVERY 0,2,6 WEEKS, THEN EVERY 8 WEEKS)
     Route: 042
     Dates: start: 20180208, end: 20180208
  9. PREDNISONE. [Concomitant]
     Active Substance: PREDNISONE
     Dosage: 40 MG, UNK
     Route: 065
  10. INFLECTRA [Suspect]
     Active Substance: INFLIXIMAB-DYYB
     Dosage: 800 MG (EVERY 8 WEEKS)
     Route: 042
     Dates: start: 20180726
  11. AZATHIOPRINE. [Concomitant]
     Active Substance: AZATHIOPRINE
     Dosage: 175 MG, 1X/DAY
     Route: 065
     Dates: start: 2006
  12. INFLECTRA [Suspect]
     Active Substance: INFLIXIMAB-DYYB
     Indication: COLITIS ULCERATIVE
     Dosage: 400 MG (EVERY 0,2,6 WEEKS, THEN EVERY 8WEEKS)
     Route: 042
     Dates: start: 20170711, end: 20180208
  13. INFLECTRA [Suspect]
     Active Substance: INFLIXIMAB-DYYB
     Dosage: 400 MG (EVERY 0,2,6 WEEKS, THEN EVERY 8 WEEKS)
     Route: 042
     Dates: start: 20171214
  14. INFLECTRA [Suspect]
     Active Substance: INFLIXIMAB-DYYB
     Dosage: 800 MG (EVERY 8 WEEKS)
     Route: 042
     Dates: start: 20180405
  15. INFLECTRA [Suspect]
     Active Substance: INFLIXIMAB-DYYB
     Dosage: 800 MG (EVERY 8 WEEKS)
     Route: 042
     Dates: start: 20181115
  16. INFLECTRA [Suspect]
     Active Substance: INFLIXIMAB-DYYB
     Dosage: 800 MG (EVERY 8 WEEKS)
     Route: 042
     Dates: start: 20190307
  17. CORTIMENT [Concomitant]
     Dosage: 9 MG, 1X/DAY
     Route: 048
     Dates: start: 20180119
  18. PREDNISONE. [Concomitant]
     Active Substance: PREDNISONE
     Dosage: 9 MG, DAILY
     Route: 065
     Dates: start: 20170513

REACTIONS (10)
  - Alopecia [Not Recovered/Not Resolved]
  - Dizziness [Unknown]
  - Urinary tract infection [Unknown]
  - Bronchitis [Recovering/Resolving]
  - Fatigue [Recovered/Resolved]
  - Clostridium difficile infection [Unknown]
  - Dehydration [Unknown]
  - Off label use [Unknown]
  - Herpes zoster [Unknown]
  - Condition aggravated [Not Recovered/Not Resolved]

NARRATIVE: CASE EVENT DATE: 2017
